FAERS Safety Report 9091312 (Version 1)
Quarter: 2013Q1

REPORT INFORMATION
  Report Type: Report from Study
  Country: US (occurrence: US)
  Receive Date: 20130131
  Receipt Date: 20130131
  Transmission Date: 20140127
  Serious: No
  Sender: FDA-Public Use
  Company Number: US-ABBOTT-12P-163-0999764-00

PATIENT
  Age: 54 Year
  Sex: Female

DRUGS (3)
  1. HUMIRA [Suspect]
     Indication: CROHN^S DISEASE
     Dates: start: 20120916, end: 20120916
  2. HUMIRA [Suspect]
     Dates: start: 20120930, end: 20120930
  3. HUMIRA [Suspect]
     Dates: start: 20121014, end: 20121014

REACTIONS (1)
  - Incorrect dose administered [Unknown]
